FAERS Safety Report 5464887-6 (Version None)
Quarter: 2007Q3

REPORT INFORMATION
  Report Type: 
  Country: None (occurrence: None)
  Receive Date: 20070820
  Receipt Date: 20070503
  Transmission Date: 20080115
  Serious: No
  Sender: FDA-Public Use
  Company Number: TPA2007A00994

PATIENT
  Age: 42 Year
  Sex: Female
  Weight: 84.8226 kg

DRUGS (4)
  1. ROZEREM [Suspect]
     Indication: NARCOLEPSY
     Dosage: 8 M, QHS, PER ORAL
     Route: 048
     Dates: start: 20061201, end: 20061201
  2. THYROID TAB [Concomitant]
  3. PROVIGIL [Concomitant]
  4. INDERAL [Concomitant]

REACTIONS (3)
  - CRYING [None]
  - MOOD ALTERED [None]
  - PREMENSTRUAL SYNDROME [None]
